FAERS Safety Report 21286776 (Version 3)
Quarter: 2022Q3

REPORT INFORMATION
  Report Type: Spontaneous
  Country: US (occurrence: US)
  Receive Date: 20220902
  Receipt Date: 20220912
  Transmission Date: 20221027
  Serious: No
  Sender: FDA-Public Use
  Company Number: US-PFIZER INC-202201110609

PATIENT
  Age: 80 Year
  Sex: Female

DRUGS (1)
  1. PAXLOVID [Suspect]
     Active Substance: NIRMATRELVIR\RITONAVIR
     Indication: COVID-19 treatment
     Dosage: UNK

REACTIONS (17)
  - Insomnia [Unknown]
  - Dry mouth [Unknown]
  - Dysgeusia [Unknown]
  - Pollakiuria [Unknown]
  - Hyperhidrosis [Unknown]
  - Feeling abnormal [Unknown]
  - Confusional state [Unknown]
  - Hypotension [Unknown]
  - Dizziness [Unknown]
  - Presyncope [Unknown]
  - Cognitive disorder [Unknown]
  - Weight decreased [Unknown]
  - Skin wrinkling [Unknown]
  - Blood potassium decreased [Unknown]
  - Nausea [Unknown]
  - Tinnitus [Unknown]
  - Head discomfort [Unknown]

NARRATIVE: CASE EVENT DATE: 20220831
